FAERS Safety Report 16397456 (Version 2)
Quarter: 2019Q2

REPORT INFORMATION
  Report Type: Spontaneous
  Country: DE (occurrence: DE)
  Receive Date: 20190606
  Receipt Date: 20190617
  Transmission Date: 20190711
  Serious: Yes (Other)
  Sender: FDA-Public Use
  Company Number: DE-EMCURE PHARMACEUTICALS LTD-2019-EPL-0256

PATIENT
  Age: 60 Year
  Sex: Male

DRUGS (11)
  1. PREDNISOLONE. [Suspect]
     Active Substance: PREDNISOLONE
     Indication: MANTLE CELL LYMPHOMA STAGE IV
     Dosage: 3 DOSAGE FORM, CYCLIC
     Dates: start: 2016
  2. RITUXIMAB. [Suspect]
     Active Substance: RITUXIMAB
     Indication: MANTLE CELL LYMPHOMA STAGE IV
     Dosage: 3 DOSAGE FORM, CYCLIC
     Dates: start: 2016
  3. ADALIMUMAB [Concomitant]
     Active Substance: ADALIMUMAB
     Indication: PSORIATIC ARTHROPATHY
     Dosage: UNK
     Dates: start: 2012
  4. MELPHALAN. [Suspect]
     Active Substance: MELPHALAN
     Indication: MANTLE CELL LYMPHOMA STAGE IV
     Dosage: HIGH-DOSE, CYCLICAL
     Dates: start: 2016
  5. VINCRISTINE [Suspect]
     Active Substance: VINCRISTINE
     Indication: MANTLE CELL LYMPHOMA STAGE IV
     Dosage: 3 DOSAGE FORM, CYCLIC
     Dates: start: 2016
  6. DOXORUBICIN [Suspect]
     Active Substance: DOXORUBICIN
     Indication: MANTLE CELL LYMPHOMA STAGE IV
     Dosage: 3 DOSAGE FORM, CYCLE
     Dates: start: 2016
  7. ETOPOSIDE. [Suspect]
     Active Substance: ETOPOSIDE
     Indication: MANTLE CELL LYMPHOMA STAGE IV
     Dosage: HIGH-DOSE, CYCLICAL
     Dates: start: 2016
  8. CYTARABINE. [Suspect]
     Active Substance: CYTARABINE
     Indication: MANTLE CELL LYMPHOMA STAGE IV
     Dosage: 3 DOSAGE FORM, CYCLIC, HIGH DOSE
     Dates: start: 2016
  9. CYTARABINE. [Suspect]
     Active Substance: CYTARABINE
     Dosage: HIGH DOSE BEAM, CYCLIC
     Dates: start: 2016
  10. BICNU [Suspect]
     Active Substance: CARMUSTINE
     Indication: MANTLE CELL LYMPHOMA STAGE IV
     Dosage: HIGH-DOSE, CYCLICAL
     Dates: start: 2016
  11. CYCLOPHOSPHAMIDE. [Suspect]
     Active Substance: CYCLOPHOSPHAMIDE
     Indication: MANTLE CELL LYMPHOMA STAGE IV
     Dosage: 3 DOSAGE FORM, CYCLE, MAXI-CHOP
     Dates: start: 2016

REACTIONS (7)
  - Retinal haemorrhage [Recovered/Resolved]
  - Lymphopenia [Recovered/Resolved]
  - Aspergillus infection [Recovered/Resolved]
  - Pancytopenia [Recovered/Resolved]
  - Herpes zoster [Recovered/Resolved]
  - Febrile neutropenia [Recovered/Resolved]
  - Bronchopulmonary aspergillosis [Recovered/Resolved]

NARRATIVE: CASE EVENT DATE: 2016
